FAERS Safety Report 22941236 (Version 3)
Quarter: 2023Q4

REPORT INFORMATION
  Report Type: Spontaneous
  Country: JP (occurrence: JP)
  Receive Date: 20230913
  Receipt Date: 20231224
  Transmission Date: 20240109
  Serious: Yes (Death, Other)
  Sender: FDA-Public Use
  Company Number: JP-SAKK-2023SA276752AA

PATIENT
  Age: 70 Year
  Sex: Male

DRUGS (3)
  1. SARCLISA [Suspect]
     Active Substance: ISATUXIMAB-IRFC
     Indication: Plasma cell myeloma
     Dosage: ADMINISTERED AT THE DOSE DESCRIBED IN THE PACKAGE INSERT, 1X
     Route: 041
     Dates: start: 202308, end: 202308
  2. KYPROLIS [Concomitant]
     Active Substance: CARFILZOMIB
     Indication: Plasma cell myeloma
     Dosage: UNK, 1X
     Route: 065
     Dates: start: 202308, end: 202308
  3. DEXAMETHASONE [Concomitant]
     Active Substance: DEXAMETHASONE
     Indication: Plasma cell myeloma
     Dosage: UNK
     Route: 065
     Dates: start: 202308, end: 202308

REACTIONS (5)
  - Disease progression [Fatal]
  - Physical deconditioning [Fatal]
  - Decreased appetite [Fatal]
  - Pleural effusion [Fatal]
  - Cardiac arrest [Fatal]

NARRATIVE: CASE EVENT DATE: 20230801
